FAERS Safety Report 18269201 (Version 1)
Quarter: 2020Q3

REPORT INFORMATION
  Report Type: Spontaneous
  Country: DZ (occurrence: DZ)
  Receive Date: 20200915
  Receipt Date: 20200915
  Transmission Date: 20201103
  Serious: Yes (Hospitalization, Other)
  Sender: FDA-Public Use
  Company Number: DZ-JAZZ-2019-DZ-013526

PATIENT
  Age: 3 Year
  Sex: Female

DRUGS (5)
  1. KIDROLASE [Suspect]
     Active Substance: ASPARAGINASE
     Indication: B PRECURSOR TYPE ACUTE LEUKAEMIA
     Dosage: 13600 IU, UNKNOWN FREQUENCY
     Route: 042
     Dates: start: 20190909, end: 20190926
  2. METHOTREXATE. [Concomitant]
     Active Substance: METHOTREXATE
     Indication: B PRECURSOR TYPE ACUTE LEUKAEMIA
     Dosage: 5000 MG/METER SQUARE
     Route: 042
     Dates: start: 20190905
  3. VINCRISTINE [Concomitant]
     Active Substance: VINCRISTINE
     Indication: B PRECURSOR TYPE ACUTE LEUKAEMIA
     Dosage: 1.5 MG/METER SQUARE, UNKNOWN FREQUENCY
     Route: 042
     Dates: start: 20190905
  4. DAUNORUBICIN [Concomitant]
     Active Substance: DAUNORUBICIN
     Indication: B PRECURSOR TYPE ACUTE LEUKAEMIA
     Dosage: 27.2 MG, UNKNOWN FREQUENCY
     Route: 042
     Dates: start: 20190926
  5. CYCLOPHOSPHAMIDE. [Concomitant]
     Active Substance: CYCLOPHOSPHAMIDE
     Indication: B PRECURSOR TYPE ACUTE LEUKAEMIA
     Dosage: 1000 MG/METER SQUARE
     Route: 042
     Dates: start: 20190906

REACTIONS (2)
  - Hypersensitivity [Recovered/Resolved]
  - Appendicitis [Unknown]

NARRATIVE: CASE EVENT DATE: 20190926
